FAERS Safety Report 10136496 (Version 1)
Quarter: 2014Q2

REPORT INFORMATION
  Report Type: Spontaneous
  Country: FR (occurrence: None)
  Receive Date: 20140425
  Receipt Date: 20140425
  Transmission Date: 20141212
  Serious: Yes (Disabling)
  Sender: FDA-Public Use
  Company Number: FR-ALSI-201400073

PATIENT
  Sex: 0

DRUGS (1)
  1. OXYGIENE MEDICINAL AIR LIQUIDE SANTE FR 200 BAR, GAZ POUR INHALATION OXYGEN [Suspect]
     Route: 055

REACTIONS (2)
  - Foot fracture [None]
  - Device failure [None]
